FAERS Safety Report 7671332-9 (Version None)
Quarter: 2011Q3

REPORT INFORMATION
  Report Type: 
  Country: None (occurrence: None)
  Receive Date: 20110809
  Receipt Date: 20110726
  Transmission Date: 20111222
  Serious: Yes (Other)
  Sender: FDA-Public Use
  Company Number: GB-UCBSA-037685

PATIENT
  Age: 55 Year
  Sex: Male

DRUGS (3)
  1. MEDAC HYDROXYCARBAMIDE [Interacting]
     Indication: MYELOID LEUKAEMIA
     Dates: start: 20110415
  2. NEUPRO [Suspect]
     Indication: PARKINSON'S DISEASE
     Route: 062
     Dates: start: 20101025, end: 20110620
  3. SINEMET [Concomitant]
     Indication: PARKINSON'S DISEASE
     Dates: start: 20090304

REACTIONS (3)
  - ERYTHEMA [None]
  - BLISTER [None]
  - DRUG INTERACTION [None]
